FAERS Safety Report 4303376-9 (Version None)
Quarter: 2004Q1

REPORT INFORMATION
  Report Type: 
  Country: None (occurrence: None)
  Receive Date: 20040223
  Receipt Date: 20040213
  Transmission Date: 20041129
  Serious: Yes (Other)
  Sender: FDA-Public Use
  Company Number: 2003-12-0515

PATIENT
  Age: 17 Year
  Sex: Female

DRUGS (2)
  1. ELOCON [Suspect]
     Indication: ECZEMA
     Dosage: TOP-DERM
     Dates: start: 19991116, end: 20031001
  2. ELOCON [Suspect]
     Indication: PSORIASIS
     Dosage: TOP-DERM
     Dates: start: 20020221

REACTIONS (17)
  - ABDOMINAL PAIN [None]
  - DEPRESSION [None]
  - DISTURBANCE IN ATTENTION [None]
  - EMOTIONAL DISTRESS [None]
  - GASTRIC ULCER [None]
  - HEADACHE [None]
  - HYPERTRICHOSIS [None]
  - INSOMNIA [None]
  - INTERVERTEBRAL DISC PROTRUSION [None]
  - NAUSEA [None]
  - OEDEMA PERIPHERAL [None]
  - PAIN IN EXTREMITY [None]
  - PSORIATIC ARTHROPATHY [None]
  - PSYCHIATRIC SYMPTOM [None]
  - SKIN STRIAE [None]
  - SUICIDE ATTEMPT [None]
  - WALKING AID USER [None]
